FAERS Safety Report 5959074-9 (Version None)
Quarter: 2008Q4

REPORT INFORMATION
  Report Type: 
  Country: None (occurrence: None)
  Receive Date: 20081120
  Receipt Date: 20071015
  Transmission Date: 20090506
  Serious: No
  Sender: FDA-Public Use
  Company Number: A0687694A

PATIENT
  Age: 24 Year
  Sex: Male

DRUGS (1)
  1. BUPROPION HYDROCHLORIDE [Suspect]
     Indication: ANXIETY
     Dosage: 150MG PER DAY
     Route: 048
     Dates: start: 20071009, end: 20071011

REACTIONS (3)
  - ANGER [None]
  - ANXIETY [None]
  - TENSION [None]
